FAERS Safety Report 7573430-7 (Version None)
Quarter: 2011Q2

REPORT INFORMATION
  Report Type: 
  Country: None (occurrence: None)
  Receive Date: 20110627
  Receipt Date: 20110620
  Transmission Date: 20111010
  Serious: Yes (Hospitalization)
  Sender: FDA-Public Use
  Company Number: US-AMGEN-USACT2011031455

PATIENT
  Age: 56 Year

DRUGS (6)
  1. FILGRASTIM [Suspect]
     Indication: BREAST CANCER
     Dosage: 5 MG/KG, UNK
     Route: 058
     Dates: start: 20081110
  2. PEGFILGRASTIM [Suspect]
     Indication: BREAST CANCER
     Dosage: 6 MG, UNK
     Route: 058
     Dates: start: 20081110
  3. DOXORUBICIN HCL [Concomitant]
     Indication: BREAST CANCER
     Dosage: 60 MG/M2, UNK
     Route: 042
     Dates: start: 20081110
  4. CYCLOPHOSPHAMIDE [Concomitant]
     Indication: BREAST CANCER
     Dosage: 600 MG/M2, UNK
     Route: 042
     Dates: start: 20081110
  5. BEVACIZUMAB [Concomitant]
     Indication: BREAST CANCER
     Dosage: UNK
     Route: 042
     Dates: start: 20081110
  6. PACLITAXEL [Concomitant]
     Indication: BREAST CANCER
     Dosage: 80 MG/M2, UNK
     Route: 042
     Dates: start: 20081110

REACTIONS (4)
  - DIARRHOEA [None]
  - VOMITING [None]
  - DEHYDRATION [None]
  - NAUSEA [None]
